FAERS Safety Report 5661545-X (Version None)
Quarter: 2008Q1

REPORT INFORMATION
  Report Type: 
  Country: None (occurrence: None)
  Receive Date: 20080312
  Receipt Date: 20080305
  Transmission Date: 20080703
  Serious: Yes (Hospitalization)
  Sender: FDA-Public Use
  Company Number: NZ-WYE-G01051108

PATIENT
  Sex: Female

DRUGS (11)
  1. EFFEXOR XR [Suspect]
     Indication: DEPRESSION
     Route: 048
     Dates: start: 20050101, end: 20080201
  2. EFFEXOR XR [Suspect]
     Indication: ANXIETY
     Route: 048
     Dates: start: 20080204, end: 20080206
  3. EFFEXOR XR [Suspect]
     Indication: OBSESSIVE-COMPULSIVE DISORDER
     Route: 048
     Dates: start: 20080207, end: 20080208
  4. EFFEXOR XR [Suspect]
     Route: 048
     Dates: start: 20080209, end: 20080210
  5. EFFEXOR XR [Suspect]
     Route: 048
     Dates: start: 20080202, end: 20080203
  6. EFFEXOR XR [Suspect]
     Route: 048
     Dates: start: 20080212, end: 20080212
  7. EFFEXOR XR [Suspect]
     Route: 048
     Dates: start: 20080213, end: 20080213
  8. EFFEXOR XR [Suspect]
     Route: 048
     Dates: start: 20080214, end: 20080215
  9. EFFEXOR XR [Suspect]
     Route: 048
     Dates: start: 20080216, end: 20080217
  10. FOLIC ACID [Concomitant]
     Dosage: UNKNOWN
     Route: 048
  11. FERRO-GRADUMET [Concomitant]
     Dosage: UNKNOWN
     Route: 048

REACTIONS (17)
  - ANGER [None]
  - DEPRESSED MOOD [None]
  - DIARRHOEA [None]
  - DISORIENTATION [None]
  - DISSOCIATION [None]
  - DISTURBANCE IN ATTENTION [None]
  - DRUG WITHDRAWAL SYNDROME [None]
  - DYSPHEMIA [None]
  - FATIGUE [None]
  - HALLUCINATION [None]
  - HEAD DISCOMFORT [None]
  - INSOMNIA [None]
  - MOOD SWINGS [None]
  - PANIC ATTACK [None]
  - TEARFULNESS [None]
  - TREMOR [None]
  - VERTIGO [None]
